FAERS Safety Report 11646975 (Version 3)
Quarter: 2015Q4

REPORT INFORMATION
  Report Type: Spontaneous
  Country: JP (occurrence: JP)
  Receive Date: 20151020
  Receipt Date: 20151104
  Transmission Date: 20160304
  Serious: Yes (Death)
  Sender: FDA-Public Use
  Company Number: JP-009507513-1510JPN008938

PATIENT
  Age: 64 Year
  Sex: Male

DRUGS (6)
  1. SODIUM FERROUS CITRATE [Concomitant]
     Active Substance: SODIUM FERROUS CITRATE
     Dosage: 50 MG, BID
     Route: 048
  2. DIAZOXIDE [Suspect]
     Active Substance: DIAZOXIDE
     Dosage: 75 MG, ONCE; DIVIDED DOSE FREQUENCY UNKNOWN
     Route: 048
     Dates: start: 20150910, end: 20150910
  3. DIAZOXIDE [Suspect]
     Active Substance: DIAZOXIDE
     Dosage: 150 MG, QD; DIVIDED DOSE FREQUENCY UNKNOWN
     Route: 048
     Dates: start: 20150911
  4. MOSAPRIDE CITRATE [Concomitant]
     Active Substance: MOSAPRIDE CITRATE
     Dosage: 5 MG, TID
     Route: 048
     Dates: start: 20150911
  5. SAMSCA [Concomitant]
     Active Substance: TOLVAPTAN
     Dosage: 7.5 MG, QD
     Route: 048
     Dates: start: 20150911
  6. LANSOPRAZOLE. [Concomitant]
     Active Substance: LANSOPRAZOLE
     Dosage: 15 MG, QD
     Route: 048
     Dates: start: 20150911

REACTIONS (1)
  - Cardiac failure [Fatal]

NARRATIVE: CASE EVENT DATE: 201509
